FAERS Safety Report 26121740 (Version 1)
Quarter: 2025Q4

REPORT INFORMATION
  Report Type: Spontaneous
  Country: GB (occurrence: GB)
  Receive Date: 20251204
  Receipt Date: 20251204
  Transmission Date: 20260117
  Serious: Yes (Death, Other)
  Sender: ITALFARMACO SPA
  Company Number: GB-ITALFARMACO SPA-2189799

PATIENT
  Sex: Female

DRUGS (1)
  1. RILUZOLE [Suspect]
     Active Substance: RILUZOLE

REACTIONS (1)
  - Death [Fatal]
